FAERS Safety Report 16684010 (Version 4)
Quarter: 2021Q1

REPORT INFORMATION
  Report Type: Spontaneous
  Country: CA (occurrence: CA)
  Receive Date: 20190808
  Receipt Date: 20210319
  Transmission Date: 20210419
  Serious: Yes (Hospitalization, Other)
  Sender: FDA-Public Use
  Company Number: CA-SAMSUNG BIOEPIS-SB-2019-22273

PATIENT
  Age: 58 Year
  Sex: Male

DRUGS (4)
  1. INFLIXIMAB [Suspect]
     Active Substance: INFLIXIMAB
     Indication: COLITIS ULCERATIVE
     Route: 042
  2. INFLIXIMAB [Suspect]
     Active Substance: INFLIXIMAB
     Route: 042
  3. INFLIXIMAB [Suspect]
     Active Substance: INFLIXIMAB
     Indication: PRODUCT USED FOR UNKNOWN INDICATION
     Route: 042
  4. PREDNISONE. [Concomitant]
     Active Substance: PREDNISONE
     Indication: PRODUCT USED FOR UNKNOWN INDICATION
     Dosage: UNKNOWN
     Route: 065

REACTIONS (19)
  - Heart rate irregular [Recovered/Resolved]
  - Haemoglobin decreased [Recovered/Resolved]
  - Intentional product use issue [Recovered/Resolved]
  - Hepatic cirrhosis [Recovered/Resolved]
  - Blood pressure fluctuation [Recovered/Resolved]
  - Inappropriate schedule of product administration [Recovered/Resolved]
  - Granulocytes abnormal [Recovered/Resolved]
  - Haematocrit decreased [Recovered/Resolved]
  - Road traffic accident [Recovered/Resolved]
  - Weight decreased [Recovered/Resolved]
  - Red cell distribution width increased [Recovered/Resolved]
  - White blood cell count decreased [Recovered/Resolved]
  - Wound [Recovered/Resolved]
  - Product use issue [Recovered/Resolved]
  - Condition aggravated [Recovered/Resolved]
  - Red blood cell sedimentation rate decreased [Recovered/Resolved]
  - Off label use [Recovered/Resolved]
  - Heart rate increased [Recovered/Resolved]
  - Lymphocyte count decreased [Recovered/Resolved]
